FAERS Safety Report 8438015-9 (Version None)
Quarter: 2012Q2

REPORT INFORMATION
  Report Type: 
  Country: None (occurrence: None)
  Receive Date: 20120614
  Receipt Date: 20120601
  Transmission Date: 20120825
  Serious: No
  Sender: FDA-Public Use
  Company Number: US-AMGEN-USASP2012027999

PATIENT
  Age: 32 Year
  Sex: Female

DRUGS (1)
  1. XGEVA [Suspect]
     Indication: MANIPULATION
     Dosage: UNK

REACTIONS (6)
  - PRODUCT TASTE ABNORMAL [None]
  - PALPITATIONS [None]
  - BLOOD PRESSURE INCREASED [None]
  - FEELING ABNORMAL [None]
  - NASAL CONGESTION [None]
  - HEADACHE [None]
